FAERS Safety Report 5492762-X (Version None)
Quarter: 2007Q4

REPORT INFORMATION
  Report Type: 
  Country: None (occurrence: None)
  Receive Date: 20071023
  Receipt Date: 20071015
  Transmission Date: 20080405
  Serious: Yes (Other)
  Sender: FDA-Public Use
  Company Number: PHBS2007GT16946

PATIENT
  Age: 67 Year
  Sex: Male

DRUGS (3)
  1. EXELON [Suspect]
     Dosage: 1.5 MG/D
     Route: 048
  2. EXELON [Suspect]
     Dosage: 3 MG/D
     Route: 048
  3. EXELON [Suspect]
     Dosage: 4.5 MG/D
     Route: 048

REACTIONS (3)
  - BLOOD PRESSURE DECREASED [None]
  - HEART RATE DECREASED [None]
  - SYNCOPE [None]
